FAERS Safety Report 17450279 (Version 1)
Quarter: 2020Q1

REPORT INFORMATION
  Report Type: Spontaneous
  Country: FR (occurrence: FR)
  Receive Date: 20200224
  Receipt Date: 20200224
  Transmission Date: 20200409
  Serious: Yes (Other)
  Sender: FDA-Public Use
  Company Number: FR-SA-2020SA046016

PATIENT
  Age: 59 Year
  Sex: Female
  Weight: 63 kg

DRUGS (19)
  1. DOXYCYCLINE. [Suspect]
     Active Substance: DOXYCYCLINE
     Indication: STREPTOCOCCAL BACTERAEMIA
     Dosage: 200 MG, QD
     Route: 048
     Dates: start: 20200124
  2. LINEZOLID. [Suspect]
     Active Substance: LINEZOLID
     Indication: STREPTOCOCCAL BACTERAEMIA
     Dosage: 1200 MG, QD
     Route: 048
     Dates: start: 20191226, end: 20191230
  3. LEVETIRACETAM MYLAN [Concomitant]
     Active Substance: LEVETIRACETAM
  4. MOVICOL [MACROGOL 4000;POTASSIUM CHLORIDE;SODIUM BICARBONATE;SODIUM CH [Concomitant]
  5. XYDALBA [Suspect]
     Active Substance: DALBAVANCIN HYDROCHLORIDE
     Indication: STREPTOCOCCAL BACTERAEMIA
     Dosage: 1800 MG, QD
     Route: 048
     Dates: start: 20191230, end: 20200114
  6. XYDALBA [Suspect]
     Active Substance: DALBAVANCIN HYDROCHLORIDE
     Dosage: 1500 MG, QD
     Route: 042
     Dates: start: 20200110, end: 20200120
  7. BACLOFEN. [Concomitant]
     Active Substance: BACLOFEN
  8. CEFOTAXIME SODIUM [Suspect]
     Active Substance: CEFOTAXIME SODIUM
     Indication: STREPTOCOCCAL BACTERAEMIA
     Dosage: 3000 MG, QD
     Route: 042
     Dates: start: 20191226, end: 20191230
  9. ZINFORO [Suspect]
     Active Substance: CEFTAROLINE FOSAMIL
     Indication: STREPTOCOCCAL BACTERAEMIA
     Dosage: 1800 MG, QD
     Route: 048
     Dates: start: 20191230, end: 20200114
  10. DAPTOMYCINE ACCORD [Suspect]
     Active Substance: DAPTOMYCIN
     Dosage: 700 MG, QD
     Route: 042
     Dates: start: 20200114, end: 20200120
  11. RIFADINE [Suspect]
     Active Substance: RIFAMPIN
     Indication: STREPTOCOCCAL BACTERAEMIA
     Dosage: 1200 MG, QD
     Route: 041
     Dates: start: 20200121
  12. DOLIPRANE [Concomitant]
     Active Substance: ACETAMINOPHEN
  13. NEFOPAM MEDISOL [Concomitant]
     Active Substance: NEFOPAM HYDROCHLORIDE
  14. BACTRIM [Concomitant]
     Active Substance: SULFAMETHOXAZOLE\TRIMETHOPRIM
  15. DAPTOMYCINE ACCORD [Suspect]
     Active Substance: DAPTOMYCIN
     Indication: STREPTOCOCCAL BACTERAEMIA
     Dosage: 10 MG, QD
     Route: 024
     Dates: start: 20200110, end: 20200114
  16. DIFFU K [Concomitant]
     Active Substance: POTASSIUM CHLORIDE
  17. LANSOPRAZOLE MYLAN [Concomitant]
     Active Substance: LANSOPRAZOLE
  18. LOVENOX [Concomitant]
     Active Substance: ENOXAPARIN SODIUM
  19. VANCOMYCIN [Suspect]
     Active Substance: VANCOMYCIN
     Indication: STREPTOCOCCAL BACTERAEMIA
     Dosage: 2.5 G, QD
     Route: 041
     Dates: start: 20200121, end: 20200130

REACTIONS (3)
  - Confusional state [Not Recovered/Not Resolved]
  - Myoclonus [Not Recovered/Not Resolved]
  - Metabolic encephalopathy [Not Recovered/Not Resolved]

NARRATIVE: CASE EVENT DATE: 20200126
